FAERS Safety Report 12699794 (Version 2)
Quarter: 2016Q4

REPORT INFORMATION
  Report Type: Report from Study
  Country: CA (occurrence: CA)
  Receive Date: 20160830
  Receipt Date: 20161111
  Transmission Date: 20170207
  Serious: Yes (Hospitalization)
  Sender: FDA-Public Use
  Company Number: CA-JNJFOC-20160820305

PATIENT
  Age: 63 Year
  Sex: Female
  Weight: 55.6 kg

DRUGS (13)
  1. IRON [Concomitant]
     Active Substance: IRON
     Route: 065
  2. MEZAVANT [Concomitant]
     Active Substance: MESALAMINE
     Route: 065
  3. RAMIPRIL. [Concomitant]
     Active Substance: RAMIPRIL
     Route: 065
  4. PREGABALIN. [Concomitant]
     Active Substance: PREGABALIN
     Route: 065
  5. CORTIFOAM [Concomitant]
     Active Substance: HYDROCORTISONE ACETATE
     Route: 065
  6. MAGNESIUM [Concomitant]
     Active Substance: MAGNESIUM
     Route: 065
  7. REMICADE [Suspect]
     Active Substance: INFLIXIMAB
     Indication: COLITIS ULCERATIVE
     Route: 042
     Dates: start: 20140428
  8. METFORMIN [Concomitant]
     Active Substance: METFORMIN HYDROCHLORIDE
     Route: 065
  9. DIAMICRON [Concomitant]
     Active Substance: GLICLAZIDE
     Route: 065
  10. TRADJENTA [Concomitant]
     Active Substance: LINAGLIPTIN
     Route: 065
  11. FOLIC ACID. [Concomitant]
     Active Substance: FOLIC ACID
     Route: 065
  12. ATENOLOL. [Concomitant]
     Active Substance: ATENOLOL
     Route: 065
  13. VITAMIN B [Concomitant]
     Active Substance: VITAMIN B
     Route: 065

REACTIONS (2)
  - Ophthalmic herpes zoster [Recovering/Resolving]
  - Herpes zoster [Recovering/Resolving]

NARRATIVE: CASE EVENT DATE: 201608
